FAERS Safety Report 4936729-6 (Version None)
Quarter: 2006Q1

REPORT INFORMATION
  Report Type: 
  Country: None (occurrence: None)
  Receive Date: 20060307
  Receipt Date: 20060303
  Transmission Date: 20060701
  Serious: Yes (Other)
  Sender: FDA-Public Use
  Company Number: FR-JNJFOC-20051205379

PATIENT
  Age: 40 Year
  Sex: Female
  Weight: 57 kg

DRUGS (5)
  1. REMICADE [Suspect]
     Dosage: 28TH INFUSION
     Route: 042
  2. REMICADE [Suspect]
     Dosage: 27TH INFUSION
     Route: 042
  3. REMICADE [Suspect]
     Indication: RHEUMATOID ARTHRITIS
     Dosage: 27TH INFUSION ON 20-DEC-2005  28TH INFUSION ON 17-FEB-2006
     Route: 042
  4. NOVATREX [Concomitant]
     Indication: RHEUMATOID ARTHRITIS
     Dosage: DOSE = TABLET
  5. SPECIAFOLDINE [Concomitant]
     Indication: RHEUMATOID ARTHRITIS
     Dosage: DOSE = TABLET

REACTIONS (5)
  - ANXIETY [None]
  - BRONCHOSPASM [None]
  - CHEST DISCOMFORT [None]
  - INFUSION RELATED REACTION [None]
  - VASODILATATION [None]
